FAERS Safety Report 9616201 (Version 1)
Quarter: 2013Q4

REPORT INFORMATION
  Report Type: Spontaneous
  Country: JP (occurrence: JP)
  Receive Date: 20131011
  Receipt Date: 20131011
  Transmission Date: 20140711
  Serious: Yes (Hospitalization)
  Sender: FDA-Public Use
  Company Number: JP-PFIZER INC-2013288106

PATIENT
  Age: 72 Year
  Sex: Male

DRUGS (4)
  1. MEDROL [Suspect]
     Dosage: 4 MG, 1X/DAY
     Route: 048
     Dates: start: 201210
  2. FLUITRAN [Concomitant]
     Indication: POLYURIA
     Dosage: UNK
  3. ACECOL [Concomitant]
     Dosage: UNK
  4. METOLATE [Concomitant]
     Dosage: UNK

REACTIONS (2)
  - Herpes zoster [Recovered/Resolved]
  - Purpura [Not Recovered/Not Resolved]
